FAERS Safety Report 6239009-4 (Version None)
Quarter: 2009Q2

REPORT INFORMATION
  Report Type: 
  Country: None (occurrence: None)
  Receive Date: 20090622
  Receipt Date: 20090610
  Transmission Date: 20091009
  Serious: Yes (Hospitalization)
  Sender: FDA-Public Use
  Company Number: B0578288A

PATIENT
  Sex: Male
  Weight: 58 kg

DRUGS (5)
  1. ALKERAN [Suspect]
     Indication: B-CELL LYMPHOMA
     Dosage: 230MG SINGLE DOSE
     Route: 065
     Dates: start: 20080924, end: 20080924
  2. MABTHERA [Suspect]
     Indication: B-CELL LYMPHOMA
     Dosage: 630MG SINGLE DOSE
     Route: 042
     Dates: start: 20080918, end: 20080918
  3. BICNU [Suspect]
     Indication: B-CELL LYMPHOMA
     Dosage: 500MG PER DAY
     Route: 042
     Dates: start: 20080919, end: 20080919
  4. ETOPOSIDE [Suspect]
     Indication: B-CELL LYMPHOMA
     Dosage: 670MG PER DAY
     Route: 042
     Dates: start: 20080920, end: 20080923
  5. ARACYTINE [Suspect]
     Indication: B-CELL LYMPHOMA
     Dosage: 670MG PER DAY
     Route: 065
     Dates: start: 20080920, end: 20080923

REACTIONS (3)
  - AGRANULOCYTOSIS [None]
  - COUGH [None]
  - PYREXIA [None]
